FAERS Safety Report 5248325-4 (Version None)
Quarter: 2007Q1

REPORT INFORMATION
  Report Type: 
  Country: None (occurrence: None)
  Receive Date: 20070227
  Receipt Date: 20070222
  Transmission Date: 20070707
  Serious: Yes (Other)
  Sender: FDA-Public Use
  Company Number: US-SHR-US-2006-038192

PATIENT
  Age: 36 Year
  Sex: Male

DRUGS (1)
  1. MAGNEVIST [Suspect]
     Dosage: 40 ML, 1 DOSE
     Route: 042
     Dates: start: 20051014, end: 20051014

REACTIONS (1)
  - NEPHROGENIC FIBROSING DERMOPATHY [None]
